FAERS Safety Report 13866240 (Version 1)
Quarter: 2017Q3

REPORT INFORMATION
  Report Type: Spontaneous
  Country: ES (occurrence: ES)
  Receive Date: 20170814
  Receipt Date: 20170814
  Transmission Date: 20171127
  Serious: Yes (Other)
  Sender: FDA-Public Use
  Company Number: ES-SA-2017SA143741

PATIENT
  Age: 71 Year
  Sex: Female
  Weight: 65 kg

DRUGS (2)
  1. MULTAQ [Suspect]
     Active Substance: DRONEDARONE
     Indication: ATRIAL FIBRILLATION
     Dosage: 400MG 2 VECES AL DIA
     Route: 048
     Dates: start: 20170612, end: 20170705
  2. MULTAQ [Suspect]
     Active Substance: DRONEDARONE
     Indication: ARRHYTHMIA
     Dosage: 400MG 2 VECES AL DIA
     Route: 048
     Dates: start: 20170612, end: 20170705

REACTIONS (1)
  - Hypertransaminasaemia [Recovering/Resolving]

NARRATIVE: CASE EVENT DATE: 20170630
